FAERS Safety Report 8575454-X (Version None)
Quarter: 2012Q3

REPORT INFORMATION
  Report Type: 
  Country: None (occurrence: None)
  Receive Date: 20120807
  Receipt Date: 20120801
  Transmission Date: 20120928
  Serious: Yes (Hospitalization, Other)
  Sender: FDA-Public Use
  Company Number: PHHY2012BR067432

PATIENT
  Age: 85 Year
  Sex: Male

DRUGS (1)
  1. STALEVO 100 [Suspect]
     Indication: PARKINSON'S DISEASE
     Dosage: STALEVO 100/25/200 MG, 1 TABLET IN THE MORNING, 1 TABLET IN THE AFTERNOON AND 1 TABLET AT NIGHT
     Route: 048

REACTIONS (4)
  - DYSPHAGIA [None]
  - CERVICAL VERTEBRAL FRACTURE [None]
  - WALKING AID USER [None]
  - FALL [None]
